FAERS Safety Report 4692329-7 (Version None)
Quarter: 2005Q2

REPORT INFORMATION
  Report Type: 
  Country: None (occurrence: None)
  Receive Date: 20050616
  Receipt Date: 20050603
  Transmission Date: 20051028
  Serious: Yes (Other)
  Sender: FDA-Public Use
  Company Number: 215018

PATIENT
  Age: 69 Year
  Sex: Female
  Weight: 36 kg

DRUGS (9)
  1. RITUXAN [Suspect]
     Indication: NON-HODGKIN'S LYMPHOMA
     Dosage: 435 MG, INTRAVENOUS
     Route: 042
     Dates: start: 20011009, end: 20011030
  2. LOXONIN (LOXOPROFEN SODIUM) [Concomitant]
  3. POLARAMINE [Concomitant]
  4. ZANTAC [Concomitant]
  5. ONEALFA (ALFACALCIDOL) [Concomitant]
  6. FLUCONAZOLE [Concomitant]
  7. EPERISONE (EPERISONE) [Concomitant]
  8. PRAVASTATIN [Concomitant]
  9. MAGNESIUM OXIDE (MAGNESIUM OXIDE) [Concomitant]

REACTIONS (4)
  - EOSINOPHIL COUNT INCREASED [None]
  - NEUTROPHIL PERCENTAGE DECREASED [None]
  - PYREXIA [None]
  - WHITE BLOOD CELL COUNT DECREASED [None]
